FAERS Safety Report 5695301-3 (Version None)
Quarter: 2008Q2

REPORT INFORMATION
  Report Type: 
  Country: None (occurrence: None)
  Receive Date: 20080404
  Receipt Date: 20080326
  Transmission Date: 20081010
  Serious: Yes (Disabling)
  Sender: FDA-Public Use
  Company Number: NL-PFIZER INC-2008027812

PATIENT
  Sex: Male
  Weight: 90 kg

DRUGS (5)
  1. LIPITOR [Suspect]
     Indication: ARTERIOSCLEROSIS
     Route: 048
     Dates: start: 20020103, end: 20080205
  2. METOPROLOL TARTRATE [Concomitant]
     Route: 048
  3. ACETAMINOPHEN [Concomitant]
     Route: 048
  4. CARBASALATE CALCIUM [Concomitant]
     Route: 048
  5. GABAPENTIN [Concomitant]
     Route: 048

REACTIONS (1)
  - HERNIA [None]
